FAERS Safety Report 6088672-X (Version None)
Quarter: 2009Q1

REPORT INFORMATION
  Report Type: 
  Country: None (occurrence: None)
  Receive Date: 20090224
  Receipt Date: 20090217
  Transmission Date: 20090719
  Serious: Yes (Hospitalization)
  Sender: FDA-Public Use
  Company Number: IT-BRISTOL-MYERS SQUIBB COMPANY-13125505

PATIENT
  Age: 75 Year
  Sex: Male

DRUGS (3)
  1. CETUXIMAB [Suspect]
     Indication: NON-SMALL CELL LUNG CANCER
     Dosage: MOST RECENT INFUSION 17-AUG-2005 (5TH INFUSION).DELAYED
     Route: 041
     Dates: start: 20050629
  2. CISPLATIN [Suspect]
     Indication: NON-SMALL CELL LUNG CANCER
     Dosage: MOST RECENT INFUSION 10-AUG-2005 (3RD INFUSION).DELAYED.
     Route: 042
     Dates: start: 20050629
  3. VINORELBINE [Suspect]
     Indication: NON-SMALL CELL LUNG CANCER
     Dosage: MOST RECENT INFUSION 17-AUG-2005 (6TH INFUSION).DELAYED.
     Route: 042
     Dates: start: 20050629

REACTIONS (1)
  - PULMONARY EMBOLISM [None]
